FAERS Safety Report 5738955-5 (Version None)
Quarter: 2008Q2

REPORT INFORMATION
  Report Type: 
  Country: None (occurrence: None)
  Receive Date: 20080515
  Receipt Date: 20080506
  Transmission Date: 20081010
  Serious: Yes (Death, Hospitalization, Other)
  Sender: FDA-Public Use
  Company Number: US-JNJFOC-20080300084

PATIENT
  Sex: Male
  Weight: 90.72 kg

DRUGS (8)
  1. REMICADE [Suspect]
     Route: 042
  2. REMICADE [Suspect]
     Indication: RHEUMATOID ARTHRITIS
     Route: 042
  3. METHOTREXATE [Concomitant]
     Indication: RHEUMATOID ARTHRITIS
  4. ATENOLOL [Concomitant]
     Indication: HYPERTENSION
  5. CLONIDINE [Concomitant]
     Indication: HYPERTENSION
  6. DIAVAN [Concomitant]
     Indication: HYPERTENSION
  7. MAXZIDE [Concomitant]
     Indication: HYPERTENSION
  8. NIACIN [Concomitant]
     Indication: LIPIDS ABNORMAL

REACTIONS (1)
  - PANCREATIC CARCINOMA METASTATIC [None]
